FAERS Safety Report 6267744-0 (Version None)
Quarter: 2009Q3

REPORT INFORMATION
  Report Type: 
  Country: None (occurrence: None)
  Receive Date: 20090710
  Receipt Date: 20090629
  Transmission Date: 20100115
  Serious: Yes (Death, Life-Threatening, Hospitalization)
  Sender: FDA-Public Use
  Company Number: 230157K09BRA

PATIENT
  Age: 49 Year
  Sex: Male

DRUGS (3)
  1. REBIF [Suspect]
     Indication: RELAPSING-REMITTING MULTIPLE SCLEROSIS
     Dosage: 22 MCG, 3 IN 1 WEEKS
     Dates: start: 20090102, end: 20090401
  2. DIPYRONE (METAMIZOLE SODIUM) [Concomitant]
  3. HYOSCINE HBR HYT [Concomitant]

REACTIONS (4)
  - ABDOMINAL PAIN [None]
  - DECREASED APPETITE [None]
  - GAIT DISTURBANCE [None]
  - WEIGHT DECREASED [None]
